FAERS Safety Report 10998865 (Version 1)
Quarter: 2015Q2

REPORT INFORMATION
  Report Type: Spontaneous
  Country: US (occurrence: US)
  Receive Date: 20150408
  Receipt Date: 20150408
  Transmission Date: 20150821
  Serious: No
  Sender: FDA-Public Use
  Company Number: US-SA-2014SA054743

PATIENT
  Age: 50 Year
  Sex: Female

DRUGS (1)
  1. ALLEGRA [Suspect]
     Active Substance: FEXOFENADINE HYDROCHLORIDE
     Indication: HYPERSENSITIVITY
     Dosage: DOSAGE: 180 X 2 DAILY
     Route: 065
     Dates: end: 20140422

REACTIONS (2)
  - Extra dose administered [Unknown]
  - Drug ineffective [Unknown]
